FAERS Safety Report 6180309-4 (Version None)
Quarter: 2009Q2

REPORT INFORMATION
  Report Type: 
  Country: None (occurrence: None)
  Receive Date: 20090504
  Receipt Date: 20090504
  Transmission Date: 20091009
  Serious: No
  Sender: FDA-Public Use
  Company Number: None

PATIENT
  Age: 59 Year
  Sex: Female
  Weight: 64.4108 kg

DRUGS (1)
  1. PROAIR HFA [Suspect]
     Indication: EMPHYSEMA
     Dates: start: 20090210, end: 20090425

REACTIONS (3)
  - DEVICE MALFUNCTION [None]
  - INCORRECT DOSE ADMINISTERED [None]
  - PRODUCT QUALITY ISSUE [None]
